FAERS Safety Report 17216332 (Version 1)
Quarter: 2019Q4

REPORT INFORMATION
  Report Type: Spontaneous
  Country: IE (occurrence: IE)
  Receive Date: 20191230
  Receipt Date: 20191230
  Transmission Date: 20200122
  Serious: Yes (Other)
  Sender: FDA-Public Use
  Company Number: IE-009507513-1911IRL008969

PATIENT
  Age: 50 Year
  Sex: Female

DRUGS (5)
  1. SINEMET PLUS 25MG/100MG TABLETS [Suspect]
     Active Substance: CARBIDOPA\LEVODOPA
     Dosage: UNK
     Route: 048
     Dates: start: 2019, end: 2019
  2. SINEMET PLUS 25MG/100MG TABLETS [Suspect]
     Active Substance: CARBIDOPA\LEVODOPA
     Dosage: UNK, QD
     Route: 048
     Dates: start: 2019, end: 20191220
  3. SINEMET PLUS 25MG/100MG TABLETS [Suspect]
     Active Substance: CARBIDOPA\LEVODOPA
     Dosage: UNK
     Route: 048
     Dates: start: 2019
  4. SINEMET PLUS 25MG/100MG TABLETS [Suspect]
     Active Substance: CARBIDOPA\LEVODOPA
     Indication: PARKINSON^S DISEASE
     Dosage: OVAL TABLET, QD
     Route: 048
     Dates: start: 201910, end: 2019
  5. SINEMET PLUS 25MG/100MG TABLETS [Suspect]
     Active Substance: CARBIDOPA\LEVODOPA
     Indication: PARKINSON^S DISEASE
     Dosage: ROUND TABLET, QD
     Route: 048
     Dates: start: 201707, end: 201910

REACTIONS (6)
  - Musculoskeletal pain [Recovering/Resolving]
  - Wrong technique in product usage process [Unknown]
  - Therapeutic response decreased [Recovering/Resolving]
  - Parkinson^s disease [Recovering/Resolving]
  - Musculoskeletal stiffness [Recovering/Resolving]
  - Product physical issue [Unknown]

NARRATIVE: CASE EVENT DATE: 2019
